FAERS Safety Report 9928119 (Version 1)
Quarter: 2014Q1

REPORT INFORMATION
  Report Type: Spontaneous
  Country: US (occurrence: None)
  Receive Date: 20140226
  Receipt Date: 20140226
  Transmission Date: 20141002
  Serious: Yes (Other)
  Sender: FDA-Public Use
  Company Number: None

PATIENT
  Age: 31 Year
  Sex: Female
  Weight: 72.58 kg

DRUGS (1)
  1. MIRVASO [Suspect]
     Indication: ROSACEA
     Dates: start: 20140222, end: 20140225

REACTIONS (3)
  - Rash macular [None]
  - Erythema [None]
  - Flushing [None]
